FAERS Safety Report 7429456-7 (Version None)
Quarter: 2011Q2

REPORT INFORMATION
  Report Type: 
  Country: None (occurrence: None)
  Receive Date: 20110421
  Receipt Date: 20110329
  Transmission Date: 20111010
  Serious: No
  Sender: FDA-Public Use
  Company Number: US-B.I. PHARMACEUTICALS,INC./RIDGEFIELD-2011-BP-09542BP

PATIENT
  Sex: Male

DRUGS (10)
  1. POTASSIUM CHLORIDE [Concomitant]
  2. ASPIRIN [Concomitant]
  3. RHINOCORT [Concomitant]
  4. SIMVASTATIN [Concomitant]
     Indication: BLOOD CHOLESTEROL INCREASED
  5. PRADAXA [Suspect]
     Indication: CEREBROVASCULAR ACCIDENT PROPHYLAXIS
     Dosage: 300 MG
     Route: 048
     Dates: start: 20110201
  6. PRADAXA [Suspect]
     Indication: ATRIAL FIBRILLATION
  7. FUROSEMIDE [Concomitant]
  8. ADVAIR DISKUS 100/50 [Concomitant]
     Indication: CHRONIC OBSTRUCTIVE PULMONARY DISEASE
  9. ACTOS [Concomitant]
     Indication: DIABETES MELLITUS
  10. LOSARTAN [Concomitant]
     Indication: HYPERTENSION

REACTIONS (2)
  - DISTURBANCE IN ATTENTION [None]
  - DIZZINESS [None]
